FAERS Safety Report 4735202-8 (Version None)
Quarter: 2005Q3

REPORT INFORMATION
  Report Type: 
  Country: None (occurrence: None)
  Receive Date: 20050804
  Receipt Date: 20050720
  Transmission Date: 20060218
  Serious: Yes (Hospitalization, Other)
  Sender: FDA-Public Use
  Company Number: USA050289988

PATIENT
  Age: 71 Year
  Sex: Male

DRUGS (14)
  1. ALIMTA [Suspect]
     Indication: NON-SMALL CELL LUNG CANCER STAGE III
     Dosage: 500 MG/M2
     Dates: start: 20041122
  2. VITAMIN B-12 [Concomitant]
  3. FOLIC ACID [Concomitant]
  4. DEXAMETHASONE [Concomitant]
  5. NITROGLYCERIN [Concomitant]
  6. LIPITOR [Concomitant]
  7. LOPRESSOR [Concomitant]
  8. NIFEDICAL XL (NIFEDIPINE PA) [Concomitant]
  9. DIOVAN [Concomitant]
  10. NOVOLIN 70/30 [Concomitant]
  11. ZESTRIL [Concomitant]
  12. PROTONIX [Concomitant]
  13. IRON [Concomitant]
  14. VITAMIN E [Concomitant]

REACTIONS (30)
  - ABDOMINAL ADHESIONS [None]
  - ABDOMINAL PAIN LOWER [None]
  - ANOREXIA [None]
  - ASPARTATE AMINOTRANSFERASE INCREASED [None]
  - ASTHENIA [None]
  - BLOOD UREA INCREASED [None]
  - DIARRHOEA [None]
  - DISEASE PROGRESSION [None]
  - GALLBLADDER ENLARGEMENT [None]
  - GASTROINTESTINAL NECROSIS [None]
  - GASTROINTESTINAL OEDEMA [None]
  - GENERAL PHYSICAL HEALTH DETERIORATION [None]
  - HAEMATOCRIT DECREASED [None]
  - HAEMOGLOBIN DECREASED [None]
  - HAEMORRHAGE [None]
  - HEPATIC INFECTION [None]
  - HICCUPS [None]
  - INTESTINAL PERFORATION [None]
  - LUNG INFILTRATION [None]
  - MUSCLE SPASMS [None]
  - NAUSEA [None]
  - NEUTROPHIL COUNT DECREASED [None]
  - PERITONEAL EFFUSION [None]
  - PLATELET COUNT DECREASED [None]
  - PORTAL VEIN PHLEBITIS [None]
  - PROCEDURAL COMPLICATION [None]
  - PULMONARY MASS [None]
  - RED BLOOD CELL COUNT DECREASED [None]
  - VOMITING [None]
  - WHITE BLOOD CELL COUNT DECREASED [None]
